FAERS Safety Report 14057893 (Version 2)
Quarter: 2017Q4

REPORT INFORMATION
  Report Type: Report from Study
  Country: US (occurrence: BR)
  Receive Date: 20171006
  Receipt Date: 20171020
  Transmission Date: 20180321
  Serious: Yes (Hospitalization, Other)
  Sender: FDA-Public Use
  Company Number: US-SUNOVION-2017SUN004342

PATIENT
  Sex: Female
  Weight: 42 kg

DRUGS (3)
  1. CLONAZEPAN [Concomitant]
     Active Substance: CLONAZEPAM
  2. CARBOLITIUM [Concomitant]
     Active Substance: LITHIUM CARBONATE
     Dosage: UNK
  3. INDACATEROL AND GLYCOPYRROLATE [Suspect]
     Active Substance: GLYCOPYRROLATE\INDACATEROL MALEATE
     Indication: LUNG INFECTION
     Dosage: 1 DF (50/110 UG), QD
     Route: 055

REACTIONS (9)
  - Weight decreased [Not Recovered/Not Resolved]
  - Malaise [Unknown]
  - Fatigue [Unknown]
  - Dyspnoea [Unknown]
  - Memory impairment [Not Recovered/Not Resolved]
  - Concomitant disease aggravated [Not Recovered/Not Resolved]
  - Bacterial infection [Not Recovered/Not Resolved]
  - Hypoacusis [Not Recovered/Not Resolved]
  - Product use in unapproved indication [Unknown]
